FAERS Safety Report 5624572-4 (Version None)
Quarter: 2008Q1

REPORT INFORMATION
  Report Type: 
  Country: None (occurrence: None)
  Receive Date: 20080213
  Receipt Date: 20080207
  Transmission Date: 20080703
  Serious: Yes (Other)
  Sender: FDA-Public Use
  Company Number: NL-ASTRAZENECA-2008AC00261

PATIENT
  Age: 18604 Day
  Sex: Female

DRUGS (3)
  1. SEROQUEL [Suspect]
     Indication: SCHIZOPHRENIA
     Dosage: IMMEDIATE RELEASE
     Route: 048
     Dates: start: 20080119, end: 20080119
  2. SEROQUEL [Suspect]
     Indication: ACUTE PSYCHOSIS
     Dosage: IMMEDIATE RELEASE
     Route: 048
     Dates: start: 20080119, end: 20080119
  3. SEROQUEL [Concomitant]
     Route: 048

REACTIONS (6)
  - CIRCULATORY COLLAPSE [None]
  - CONCUSSION [None]
  - DIZZINESS [None]
  - DRUG DISPENSING ERROR [None]
  - HEAD INJURY [None]
  - ORTHOSTATIC HYPOTENSION [None]
